FAERS Safety Report 8003854-5 (Version None)
Quarter: 2011Q4

REPORT INFORMATION
  Report Type: 
  Country: None (occurrence: None)
  Receive Date: 20111222
  Receipt Date: 20111216
  Transmission Date: 20120403
  Serious: Yes (Hospitalization)
  Sender: FDA-Public Use
  Company Number: US-ABBOTT-11P-163-0872384-00

PATIENT
  Sex: Female

DRUGS (5)
  1. CORTICOSTEROIDS [Concomitant]
     Indication: PRODUCT USED FOR UNKNOWN INDICATION
  2. HUMIRA [Suspect]
     Route: 058
  3. HUMIRA [Suspect]
     Indication: CROHN'S DISEASE
     Dosage: 160MG (BASELINE) / 80MG WEEK 2
     Route: 058
     Dates: start: 20070815, end: 20090210
  4. CERTOLIZUMAB PEGOL [Concomitant]
     Indication: PRODUCT USED FOR UNKNOWN INDICATION
  5. IMMUNOSUPPRESSANTS [Concomitant]
     Indication: PRODUCT USED FOR UNKNOWN INDICATION

REACTIONS (8)
  - ILEOSTOMY [None]
  - THROMBOSIS [None]
  - SCAR [None]
  - INTESTINAL RESECTION [None]
  - DEVICE RELATED INFECTION [None]
  - ANAL STENOSIS [None]
  - CROHN'S DISEASE [None]
  - PROCTOCOLECTOMY [None]
